FAERS Safety Report 8772414 (Version 2)
Quarter: 2012Q4

REPORT INFORMATION
  Report Type: 
  Country: US (occurrence: US)
  Receive Date: 20120905
  Receipt Date: 20120918
  Transmission Date: 20130627
  Serious: Yes (Other)
  Sender: FDA-Public Use
  Company Number: US-SANOFI-AVENTIS-2012SA061043

PATIENT
  Age: 66 Year
  Sex: Female
  Weight: 56.8 kg

DRUGS (5)
  1. MULTAQ [Suspect]
     Indication: ATRIAL FIBRILLATION
     Route: 048
     Dates: start: 2011
  2. DABIGATRAN ETEXILATE [Concomitant]
     Indication: ANTIPLATELET THERAPY
     Route: 065
  3. METOPROLOL [Concomitant]
     Indication: HEART RATE
  4. LOTREL [Concomitant]
     Indication: BLOOD PRESSURE HIGH
     Dosage: 5/20
  5. TYLENOL W/CODEINE NO. 4 [Concomitant]
     Indication: PAIN

REACTIONS (1)
  - Urinary tract infection [Recovered/Resolved]
